FAERS Safety Report 7286253-3 (Version None)
Quarter: 2011Q1

REPORT INFORMATION
  Report Type: 
  Country: None (occurrence: None)
  Receive Date: 20110210
  Receipt Date: 20110201
  Transmission Date: 20110831
  Serious: Yes (Other)
  Sender: FDA-Public Use
  Company Number: PHHY2011AU07409

PATIENT
  Sex: Female

DRUGS (1)
  1. ACLASTA [Suspect]
     Dosage: UNK
     Dates: start: 20100101

REACTIONS (4)
  - PAIN [None]
  - HAIR TEXTURE ABNORMAL [None]
  - BONE DISORDER [None]
  - ONYCHOCLASIS [None]
